FAERS Safety Report 4613999-5 (Version None)
Quarter: 2005Q1

REPORT INFORMATION
  Report Type: 
  Country: None (occurrence: None)
  Receive Date: 20050321
  Receipt Date: 20050228
  Transmission Date: 20050727
  Serious: Yes (Other)
  Sender: FDA-Public Use
  Company Number: US-ROCHE-397367

PATIENT
  Age: 57 Year
  Sex: Female
  Weight: 54.4 kg

DRUGS (7)
  1. KLONOPIN [Suspect]
     Indication: PANIC DISORDER
     Route: 048
     Dates: start: 19890615, end: 20040901
  2. KLONOPIN [Suspect]
     Dosage: DOSE WAS VARIED.
     Route: 048
     Dates: start: 20040901, end: 20040914
  3. KLONOPIN [Suspect]
     Route: 048
  4. SYNTHROID [Concomitant]
     Route: 048
  5. CALCIUM SUPPLEMENT [Concomitant]
     Route: 048
  6. NAPROXEN [Concomitant]
     Dates: start: 20041115
  7. FLEXERIL [Concomitant]
     Dates: start: 20041115

REACTIONS (22)
  - ABASIA [None]
  - AURA [None]
  - CHANGE OF BOWEL HABIT [None]
  - CHOKING SENSATION [None]
  - DRUG DEPENDENCE [None]
  - DRUG WITHDRAWAL SYNDROME [None]
  - FEELING ABNORMAL [None]
  - FEELING HOT [None]
  - GASTRIC DILATATION [None]
  - MOVEMENT DISORDER [None]
  - MUSCLE RIGIDITY [None]
  - MUSCULOSKELETAL DISCOMFORT [None]
  - PAIN [None]
  - PARAESTHESIA [None]
  - PAROSMIA [None]
  - PHOTOPHOBIA [None]
  - PSYCHOTIC DISORDER [None]
  - RESTLESSNESS [None]
  - SENSORY DISTURBANCE [None]
  - SPEECH DISORDER [None]
  - TENSION HEADACHE [None]
  - TRANSIENT ISCHAEMIC ATTACK [None]
